FAERS Safety Report 4847027-3 (Version None)
Quarter: 2005Q4

REPORT INFORMATION
  Report Type: 
  Country: None (occurrence: None)
  Receive Date: 20051205
  Receipt Date: 20051118
  Transmission Date: 20060501
  Serious: Yes (Hospitalization)
  Sender: FDA-Public Use
  Company Number: 2005BI021412

PATIENT
  Age: 50 Year
  Sex: Female
  Weight: 70 kg

DRUGS (16)
  1. ZEVALIN [Suspect]
     Indication: BONE MARROW CONDITIONING REGIMEN
     Dosage: 1X; IV
     Route: 042
     Dates: start: 20050825, end: 20050825
  2. ZEVALIN [Suspect]
     Indication: BONE MARROW CONDITIONING REGIMEN
     Dosage: 25 MCI; 1X; IV
     Route: 042
     Dates: start: 20050825, end: 20050825
  3. RITUXIMAB [Concomitant]
  4. HEPARIN [Concomitant]
  5. TRANXENE [Concomitant]
  6. ANTI-HISTAMINE TAB [Concomitant]
  7. LEXOMIL [Concomitant]
  8. AMIKLIN [Concomitant]
  9. PIPERACILLIN [Concomitant]
  10. ZOVIRAX [Concomitant]
  11. STILNOX [Concomitant]
  12. G-CSF [Concomitant]
  13. BCNU [Concomitant]
  14. ETOPOSIDE [Concomitant]
  15. CYTARABINE [Concomitant]
  16. MELPHALAN [Concomitant]

REACTIONS (7)
  - ABDOMINAL PAIN UPPER [None]
  - ANOREXIA [None]
  - DEPRESSION [None]
  - EATING DISORDER [None]
  - GASTROINTESTINAL DISORDER [None]
  - NAUSEA [None]
  - STEM CELL TRANSPLANT [None]
